FAERS Safety Report 16361889 (Version 2)
Quarter: 2019Q4

REPORT INFORMATION
  Report Type: Report from Study
  Country: DE (occurrence: DE)
  Receive Date: 20190528
  Receipt Date: 20191004
  Transmission Date: 20200122
  Serious: Yes (Hospitalization, Other)
  Sender: FDA-Public Use
  Company Number: DE-MYLANLABS-2019M1049639

PATIENT
  Age: 39 Year
  Sex: Female
  Weight: 54 kg

DRUGS (6)
  1. DOCETAXEL. [Suspect]
     Active Substance: DOCETAXEL
     Indication: HER-2 POSITIVE BREAST CANCER
     Dosage: DATE OF LAST DOSE PRIOR TO SAE: 09/SEP/2016
     Route: 042
     Dates: start: 20160527
  2. DIPYRONE [Concomitant]
     Active Substance: DIPYRONE
     Indication: PAIN
     Dosage: UNK
     Route: 048
  3. LONQUEX [Suspect]
     Active Substance: LIPEGFILGRASTIM
     Indication: BREAST CANCER
     Dosage: D2
     Route: 058
     Dates: start: 20160617
  4. PERTUZUMAB. [Suspect]
     Active Substance: PERTUZUMAB
     Indication: HER-2 POSITIVE BREAST CANCER
     Dosage: DATE OF LAST DOSE PRIOR TO SAE: 09/SEP/2016 DATE OF LAST DOSE PRIOR TO EVENT SECOND OCCURENCE OF ANE
     Route: 042
     Dates: start: 20160527
  5. IBUPROFEN. [Concomitant]
     Active Substance: IBUPROFEN
     Indication: PAIN
     Dosage: 600 MILLIGRAM, QD
     Route: 048
     Dates: start: 20160630
  6. TRASTUZUMAB. [Suspect]
     Active Substance: TRASTUZUMAB
     Indication: HER-2 POSITIVE BREAST CANCER
     Dosage: LAST DOSE PRIOR TO SAE: 09/SEP/2016 DATE OF LAST DOSE
     Route: 042
     Dates: start: 20160527

REACTIONS (16)
  - Decreased appetite [Recovered/Resolved]
  - Haematoma [Recovered/Resolved]
  - Anal fissure [Recovered/Resolved]
  - Diarrhoea [Recovered/Resolved]
  - Pain [Unknown]
  - Hypokinesia [Recovered/Resolved]
  - Anaemia [Recovered/Resolved]
  - Vascular device infection [Unknown]
  - Post-traumatic pain [Recovered/Resolved]
  - Abdominal pain [Recovered/Resolved]
  - Neutropenia [Recovered/Resolved]
  - Epistaxis [Recovered/Resolved]
  - Alopecia [Recovered/Resolved]
  - Polyneuropathy [Recovered/Resolved]
  - Hot flush [Recovered/Resolved]
  - Swelling [Unknown]

NARRATIVE: CASE EVENT DATE: 20160527
